FAERS Safety Report 20794156 (Version 1)
Quarter: 2022Q2

REPORT INFORMATION
  Report Type: Spontaneous
  Country: US (occurrence: US)
  Receive Date: 20220506
  Receipt Date: 20220506
  Transmission Date: 20220720
  Serious: Yes (Death)
  Sender: FDA-Public Use
  Company Number: US-ABBVIE-22K-163-4383658-00

PATIENT
  Age: 67 Year
  Sex: Male

DRUGS (1)
  1. IMBRUVICA [Suspect]
     Active Substance: IBRUTINIB
     Indication: Product used for unknown indication
     Dosage: DAY 1 TO 10 OF EACH 21 DAY CYCLE
     Route: 048
     Dates: start: 20220308

REACTIONS (1)
  - Death [Fatal]

NARRATIVE: CASE EVENT DATE: 20220419
